FAERS Safety Report 9993787 (Version 1)
Quarter: 2014Q1

REPORT INFORMATION
  Report Type: Spontaneous
  Country: US (occurrence: US)
  Receive Date: 20140310
  Receipt Date: 20140310
  Transmission Date: 20141002
  Serious: No
  Sender: FDA-Public Use
  Company Number: US-AMGEN-USASP2013016129

PATIENT
  Age: 84 Year
  Sex: Male

DRUGS (1)
  1. SENSIPAR [Suspect]
     Indication: SECONDARY HYPERTHYROIDISM
     Dosage: 60 MG, QD

REACTIONS (3)
  - Wrong technique in drug usage process [Unknown]
  - Nausea [Not Recovered/Not Resolved]
  - Vomiting [Not Recovered/Not Resolved]
